FAERS Safety Report 13015051 (Version 2)
Quarter: 2016Q4

REPORT INFORMATION
  Report Type: Report from Study
  Country: KR (occurrence: KR)
  Receive Date: 20161210
  Receipt Date: 20161216
  Transmission Date: 20170207
  Serious: Yes (Hospitalization)
  Sender: FDA-Public Use
  Company Number: KR-AMGEN-KORCT2016174894

PATIENT
  Age: 19 Year
  Sex: Female
  Weight: 40.5 kg

DRUGS (16)
  1. RAPAMUNE [Concomitant]
     Active Substance: SIROLIMUS
     Dosage: 2TAB, QD
     Route: 048
     Dates: start: 20161119, end: 20161130
  2. NORMAL SALINE [Concomitant]
     Active Substance: SODIUM CHLORIDE
     Dosage: UNK
     Route: 042
     Dates: start: 20161119, end: 20161130
  3. BENDAMUSTINE [Suspect]
     Active Substance: BENDAMUSTINE
     Dosage: 120 MG/M2, CYCLE 2 DAY 1 AND 2
     Route: 042
     Dates: start: 20160725, end: 20160726
  4. PEGFILGRASTIM [Suspect]
     Active Substance: PEGFILGRASTIM
     Indication: DIFFUSE LARGE B-CELL LYMPHOMA
     Dosage: 6 MG, CYCLE 4 DAY 3
     Route: 058
     Dates: start: 20161016
  5. BENDAMUSTINE [Suspect]
     Active Substance: BENDAMUSTINE
     Dosage: 83 MG, CYCLE 4 DAY 1 AND 2
     Route: 042
     Dates: start: 20161013, end: 20161014
  6. NORMAL SALINE INJ [Concomitant]
     Dosage: UNK
     Route: 042
     Dates: start: 20161119, end: 20161130
  7. BENDAMUSTINE [Suspect]
     Active Substance: BENDAMUSTINE
     Dosage: 120 MG/M2, CYCLE 3 DAY 1 AND 2
     Route: 042
     Dates: start: 20160901, end: 20160901
  8. RITUXIMAB [Suspect]
     Active Substance: RITUXIMAB
     Dosage: 1400 MG, SINGLE DOSE, CYCLE 3 DAY 1
     Route: 058
     Dates: start: 20161013, end: 20161013
  9. CALCORT [Concomitant]
     Active Substance: DEFLAZACORT
     Dosage: 1 TAB, QD
     Route: 048
     Dates: start: 20161119, end: 20161130
  10. NEUTROGIN [Concomitant]
     Active Substance: LENOGRASTIM
     Dosage: 1AMP QD
     Route: 058
     Dates: start: 20161128
  11. BENDAMUSTINE [Suspect]
     Active Substance: BENDAMUSTINE
     Indication: DIFFUSE LARGE B-CELL LYMPHOMA
     Dosage: 120 MG/M2, CYCLE 1 DAY 2 AND 3
     Route: 042
     Dates: start: 20160705, end: 20160706
  12. RITUXIMAB [Suspect]
     Active Substance: RITUXIMAB
     Dosage: 1400 MG, SINGLE DOSE, CYCLE 3 DAY 1
     Route: 058
     Dates: start: 20160901, end: 20160901
  13. NEUTROGIN [Concomitant]
     Active Substance: LENOGRASTIM
     Dosage: 1AMP QD
     Route: 058
     Dates: start: 20161126
  14. RITUXIMAB [Suspect]
     Active Substance: RITUXIMAB
     Indication: DIFFUSE LARGE B-CELL LYMPHOMA
     Dosage: 1400 MG, SINGLE DOSE, CYCLE 2 DAY 1
     Route: 058
     Dates: start: 20160725, end: 20160725
  15. RITUXIMAB [Suspect]
     Active Substance: RITUXIMAB
     Indication: DIFFUSE LARGE B-CELL LYMPHOMA
     Dosage: 375 MG/M2, SINGLE DOSE, CYCLE FIRST DAY 1
     Route: 042
     Dates: start: 20160704, end: 20160704
  16. AVELOX [Concomitant]
     Active Substance: MOXIFLOXACIN HYDROCHLORIDE
     Dosage: 1 TAB, QD
     Route: 048
     Dates: start: 20161125, end: 20161125

REACTIONS (1)
  - Cytomegalovirus infection [Recovering/Resolving]

NARRATIVE: CASE EVENT DATE: 20160726
